FAERS Safety Report 8615162-X (Version None)
Quarter: 2012Q3

REPORT INFORMATION
  Report Type: 
  Country: None (occurrence: None)
  Receive Date: 20120823
  Receipt Date: 20120822
  Transmission Date: 20120928
  Serious: Yes (Hospitalization)
  Sender: FDA-Public Use
  Company Number: NG-BAYER-2012-086597

PATIENT
  Age: 23 Year
  Sex: Male

DRUGS (2)
  1. PRAZIQUANTEL [Suspect]
     Indication: SCHISTOSOMIASIS
     Dosage: 1 COURSE 2 YEARS PRIOR
  2. PRAZIQUANTEL [Suspect]
     Dosage: EVENT TREATED WITH A SECOND COURSE OF PRAZIQUANTEL (DOSING NOS)

REACTIONS (2)
  - SCHISTOSOMIASIS [None]
  - URETERIC OBSTRUCTION [None]
